FAERS Safety Report 13554443 (Version 7)
Quarter: 2017Q2

REPORT INFORMATION
  Report Type: Spontaneous
  Country: CH (occurrence: CH)
  Receive Date: 20170517
  Receipt Date: 20170606
  Transmission Date: 20170830
  Serious: Yes (Death, Hospitalization, Other)
  Sender: FDA-Public Use
  Company Number: CH-PFIZER INC-2017208891

PATIENT
  Age: 72 Year
  Sex: Male
  Weight: 63 kg

DRUGS (12)
  1. KEPPRA [Interacting]
     Active Substance: LEVETIRACETAM
     Dosage: 250 MG, 2X/DAY (1-0-0-1 3-0-0-3 UNCHANGED)
     Route: 048
  2. BILOL [Concomitant]
     Active Substance: BISOPROLOL
     Dosage: 1.5 DF, 1X/DAY (1.5 DOSAGE FORM,1 IN 1 D)
     Route: 048
  3. LIXIANA [Concomitant]
     Active Substance: EDOXABAN TOSYLATE
     Dosage: 30 MG, 1X/DAY
     Route: 048
     Dates: end: 20170131
  4. BECOZYM /00228301/ [Concomitant]
     Active Substance: CALCIUM PANTOTHENATE\NIACINAMIDE\PYRIDOXINE HYDROCHLORIDE\RIBOFLAVIN\THIAMINE MONONITRATE
     Dosage: 1 DF, 1X/DAY (1-0-0-0)
     Route: 048
  5. ELIQUIS [Interacting]
     Active Substance: APIXABAN
     Indication: CEREBROVASCULAR ACCIDENT PROPHYLAXIS
     Dosage: 2.5 MG, 2X/DAY
     Route: 048
     Dates: start: 20170207
  6. PANTOPRAZOL [Interacting]
     Active Substance: PANTOPRAZOLE SODIUM
     Dosage: 40 MG, 1X/DAY (1-0-0-0)
     Route: 065
  7. METHOTREXATE SODIUM. [Interacting]
     Active Substance: METHOTREXATE SODIUM
     Dosage: 10 MG, 1X/DAY
     Route: 048
     Dates: start: 2017
  8. ZESTRIL [Concomitant]
     Active Substance: LISINOPRIL
     Dosage: 0.5 DF, 1X/DAY
     Route: 048
  9. FELDEN [Suspect]
     Active Substance: PIROXICAM
     Dosage: 20 MG, AS NEEDED
     Route: 065
  10. METHOTREXATE SODIUM. [Interacting]
     Active Substance: METHOTREXATE SODIUM
     Indication: RHEUMATIC FEVER
     Dosage: MONDAY: 2 PCS AT 08:00
     Route: 048
     Dates: start: 201608, end: 2017
  11. KEPPRA [Interacting]
     Active Substance: LEVETIRACETAM
     Dosage: 500 MG, 2X/DAY (1/2-0-0-1/2)
     Route: 048
  12. ACIDUM FOLICUM STREULI [Concomitant]
     Active Substance: FOLIC ACID
     Dosage: TUESDAY: 1 DF AT 08:00
     Route: 048

REACTIONS (17)
  - Acute kidney injury [Unknown]
  - Pneumonia aspiration [Unknown]
  - Rash generalised [Unknown]
  - Abdominal discomfort [Unknown]
  - Cardiac failure [Fatal]
  - Faeces discoloured [Unknown]
  - Influenza [Unknown]
  - Oral herpes [Unknown]
  - Overdose [Unknown]
  - Intentional product misuse [Unknown]
  - Bone marrow toxicity [Unknown]
  - Drug interaction [Fatal]
  - Multiple organ dysfunction syndrome [Fatal]
  - Febrile neutropenia [Unknown]
  - Epistaxis [Recovered/Resolved]
  - Haematotoxicity [Unknown]
  - Pancytopenia [Fatal]

NARRATIVE: CASE EVENT DATE: 2017
